FAERS Safety Report 7199319-3 (Version None)
Quarter: 2010Q4

REPORT INFORMATION
  Report Type: 
  Country: None (occurrence: None)
  Receive Date: 20101223
  Receipt Date: 20101223
  Transmission Date: 20110411
  Serious: Yes (Other)
  Sender: FDA-Public Use
  Company Number: None

PATIENT
  Age: 24 Year
  Sex: Male
  Weight: 97.5234 kg

DRUGS (2)
  1. TRAMADOL HCL [Suspect]
     Indication: ARTHRITIS
     Dosage: 2 PILLS 4 TIMES A DAY PO
     Route: 048
     Dates: start: 20081001, end: 20100820
  2. TRAMADOL HCL [Suspect]
     Indication: BACK PAIN
     Dosage: 2 PILLS 4 TIMES A DAY PO
     Route: 048
     Dates: start: 20081001, end: 20100820

REACTIONS (2)
  - GRUNTING [None]
  - PARTIAL SEIZURES [None]
